FAERS Safety Report 15417570 (Version 2)
Quarter: 2018Q4

REPORT INFORMATION
  Report Type: Spontaneous
  Country: US (occurrence: US)
  Receive Date: 20180924
  Receipt Date: 20181001
  Transmission Date: 20190204
  Serious: No
  Sender: FDA-Public Use
  Company Number: US-SUNOVION-2018SUN003556

PATIENT
  Age: 24 Year
  Sex: Female

DRUGS (1)
  1. LATUDA [Suspect]
     Active Substance: LURASIDONE HYDROCHLORIDE
     Indication: HALLUCINATIONS, MIXED
     Dosage: 80 MG, UNK
     Route: 048

REACTIONS (3)
  - Blood prolactin increased [Unknown]
  - Amenorrhoea [Unknown]
  - Off label use [Unknown]
